FAERS Safety Report 4565305-2 (Version None)
Quarter: 2005Q1

REPORT INFORMATION
  Report Type: 
  Country: None (occurrence: None)
  Receive Date: 20050127
  Receipt Date: 20050127
  Transmission Date: 20050727
  Serious: Yes (Life-Threatening, Hospitalization)
  Sender: FDA-Public Use
  Company Number: None

PATIENT
  Age: 62 Year
  Sex: Male
  Weight: 78.5 kg

DRUGS (8)
  1. MORPHINE [Suspect]
  2. GATIFLOXACIN [Concomitant]
  3. HEPARIN [Concomitant]
  4. ACETAMINOPHEN AND CODEINE PHOSPHATE [Concomitant]
  5. GEMFIBROZIL [Concomitant]
  6. GABAPENTIN [Concomitant]
  7. CALCIUM CARBONATE [Concomitant]
  8. DOCUSATE [Concomitant]

REACTIONS (2)
  - RENAL FAILURE ACUTE [None]
  - RHABDOMYOLYSIS [None]
